FAERS Safety Report 20651116 (Version 4)
Quarter: 2022Q4

REPORT INFORMATION
  Report Type: Report from Study
  Country: CA (occurrence: CA)
  Receive Date: 20220329
  Receipt Date: 20221208
  Transmission Date: 20230113
  Serious: Yes (Other)
  Sender: FDA-Public Use
  Company Number: CA-NOVARTISPH-NVSC2021CA277957

PATIENT
  Age: 56 Year
  Sex: Female

DRUGS (3)
  1. HYRIMOZ [Suspect]
     Active Substance: ADALIMUMAB-ADAZ
     Indication: Colitis ulcerative
     Dosage: 40 MG
     Route: 058
     Dates: start: 20210906
  2. HYRIMOZ [Suspect]
     Active Substance: ADALIMUMAB-ADAZ
     Indication: Ankylosing spondylitis
     Dosage: 40 MG, QW
     Route: 058
  3. METHOTREXATE [Suspect]
     Active Substance: METHOTREXATE
     Indication: Product used for unknown indication
     Dosage: UNK
     Route: 065

REACTIONS (14)
  - Ankylosing spondylitis [Unknown]
  - Irritability [Unknown]
  - Aggression [Unknown]
  - Fatigue [Unknown]
  - Feeling abnormal [Unknown]
  - Gastrointestinal disorder [Unknown]
  - Taste disorder [Unknown]
  - Dyspepsia [Unknown]
  - Inflammation [Unknown]
  - Skin striae [Unknown]
  - Rhinorrhoea [Unknown]
  - Depression [Unknown]
  - Nasopharyngitis [Unknown]
  - Injection site pain [Unknown]
